FAERS Safety Report 11184917 (Version 1)
Quarter: 2015Q2

REPORT INFORMATION
  Report Type: Spontaneous
  Country: DE (occurrence: JP)
  Receive Date: 20150612
  Receipt Date: 20150612
  Transmission Date: 20150821
  Serious: Yes (Hospitalization)
  Sender: FDA-Public Use
  Company Number: JP-FRI-1000077355

PATIENT
  Age: 84 Year
  Sex: Female

DRUGS (1)
  1. MEMANTINE [Suspect]
     Active Substance: MEMANTINE
     Indication: DEMENTIA
     Dosage: 60 MG
     Route: 048
     Dates: start: 201505, end: 20150603

REACTIONS (4)
  - Dizziness [Not Recovered/Not Resolved]
  - Overdose [Recovered/Resolved]
  - Nystagmus [Unknown]
  - Drug dispensing error [Unknown]

NARRATIVE: CASE EVENT DATE: 20150602
